FAERS Safety Report 22145325 (Version 2)
Quarter: 2024Q2

REPORT INFORMATION
  Report Type: Spontaneous
  Country: CN (occurrence: CN)
  Receive Date: 20230328
  Receipt Date: 20240415
  Transmission Date: 20240716
  Serious: Yes (Hospitalization, Other)
  Sender: FDA-Public Use
  Company Number: None

PATIENT
  Age: 52 Year
  Sex: Female

DRUGS (16)
  1. MYCOPHENOLATE MOFETIL [Suspect]
     Active Substance: MYCOPHENOLATE MOFETIL
     Indication: Nephrotic syndrome
     Dosage: 0.75 GRAM, EVERY 12 HRS
     Route: 065
     Dates: start: 201412, end: 2015
  2. MYCOPHENOLATE MOFETIL [Suspect]
     Active Substance: MYCOPHENOLATE MOFETIL
     Indication: Immunosuppressant drug therapy
  3. FUROSEMIDE [Suspect]
     Active Substance: FUROSEMIDE
     Indication: Nephrotic syndrome
     Dosage: UNK
     Route: 065
     Dates: start: 201412
  4. FUROSEMIDE [Suspect]
     Active Substance: FUROSEMIDE
     Indication: IgA nephropathy
  5. FUROSEMIDE [Suspect]
     Active Substance: FUROSEMIDE
     Indication: Polyuria
  6. PREDNISOLONE [Suspect]
     Active Substance: PREDNISOLONE
     Indication: Nephrotic syndrome
     Dosage: 20 MILLIGRAM, QD
     Route: 065
     Dates: start: 201412, end: 2015
  7. PREDNISOLONE [Suspect]
     Active Substance: PREDNISOLONE
     Indication: Immunosuppressant drug therapy
  8. IRBESARTAN [Suspect]
     Active Substance: IRBESARTAN
     Indication: Nephrotic syndrome
     Dosage: 300 MILLIGRAM, QD
     Route: 065
     Dates: start: 201412, end: 201501
  9. IRBESARTAN [Suspect]
     Active Substance: IRBESARTAN
     Indication: IgA nephropathy
  10. TOLVAPTAN [Suspect]
     Active Substance: TOLVAPTAN
     Indication: Nephrotic syndrome
     Dosage: UNK
     Route: 065
     Dates: start: 201412
  11. TOLVAPTAN [Suspect]
     Active Substance: TOLVAPTAN
     Indication: IgA nephropathy
  12. TOLVAPTAN [Suspect]
     Active Substance: TOLVAPTAN
     Indication: Polyuria
  13. ALBUMIN HUMAN [Suspect]
     Active Substance: ALBUMIN HUMAN
     Indication: Nephrotic syndrome
     Dosage: UNK
     Route: 042
     Dates: start: 201412
  14. ALBUMIN HUMAN [Suspect]
     Active Substance: ALBUMIN HUMAN
     Indication: IgA nephropathy
  15. INSULIN NOS [Concomitant]
     Active Substance: INSULIN NOS
     Indication: Type 2 diabetes mellitus
     Dosage: UNK
     Route: 065
  16. VALSARTAN [Concomitant]
     Active Substance: VALSARTAN
     Indication: Hypertension
     Dosage: 160 MILLIGRAM
     Route: 065

REACTIONS (4)
  - Acute kidney injury [Recovered/Resolved]
  - Pneumonia fungal [Unknown]
  - Drug ineffective [Unknown]
  - Off label use [Unknown]

NARRATIVE: CASE EVENT DATE: 20141201
